FAERS Safety Report 8094136-4 (Version None)
Quarter: 2012Q1

REPORT INFORMATION
  Report Type: 
  Country: None (occurrence: None)
  Receive Date: 20120130
  Receipt Date: 20120130
  Transmission Date: 20120608
  Serious: Yes (Disabling)
  Sender: FDA-Public Use
  Company Number: None

PATIENT
  Age: 68 Year
  Sex: Male
  Weight: 100 kg

DRUGS (1)
  1. REGADENOSON [Suspect]
     Indication: CARDIAC STRESS TEST
     Dosage: .4MG
     Route: 042
     Dates: start: 20120125, end: 20120125

REACTIONS (1)
  - WHEEZING [None]
